FAERS Safety Report 26066073 (Version 1)
Quarter: 2025Q4

REPORT INFORMATION
  Report Type: Spontaneous
  Country: EU (occurrence: EU)
  Receive Date: 20251119
  Receipt Date: 20251119
  Transmission Date: 20260118
  Serious: Yes (Hospitalization)
  Sender: MYLAN
  Company Number: None

PATIENT
  Age: 56 Year
  Sex: Male

DRUGS (1)
  1. ELETRIPTAN [Suspect]
     Active Substance: ELETRIPTAN
     Indication: Migraine
     Dosage: 80 MILLIGRAM, QD

REACTIONS (2)
  - Medication overuse headache [Not Recovered/Not Resolved]
  - Aortic dissection [Recovering/Resolving]

NARRATIVE: CASE EVENT DATE: 20250101
